FAERS Safety Report 9192812 (Version 1)
Quarter: 2013Q1

REPORT INFORMATION
  Report Type: Spontaneous
  Country: US (occurrence: None)
  Receive Date: 20130325
  Receipt Date: 20130325
  Transmission Date: 20140127
  Serious: Yes (Hospitalization, Other)
  Sender: FDA-Public Use
  Company Number: 2013P1003273

PATIENT
  Age: 65 Year
  Sex: Male

DRUGS (4)
  1. KETOROLAC TROMETHAMINE [Suspect]
     Indication: SPINAL FRACTURE
     Route: 042
  2. MORPHINE [Concomitant]
  3. TRAMADOL [Concomitant]
  4. HYDROCODONE [Concomitant]

REACTIONS (4)
  - Hyponatraemia [None]
  - Agitation [None]
  - Confusional state [None]
  - Inappropriate antidiuretic hormone secretion [None]
